FAERS Safety Report 10865310 (Version 2)
Quarter: 2015Q2

REPORT INFORMATION
  Report Type: Report from Study
  Country: US (occurrence: US)
  Receive Date: 20150224
  Receipt Date: 20150422
  Transmission Date: 20150821
  Serious: Yes (Other)
  Sender: FDA-Public Use
  Company Number: US-MYLANLABS-2014M1012212

PATIENT

DRUGS (3)
  1. AMNESTEEM [Suspect]
     Active Substance: ISOTRETINOIN
     Dosage: 10 MG, BID
     Dates: end: 2014
  2. AMNESTEEM [Suspect]
     Active Substance: ISOTRETINOIN
     Dosage: 20 MG, BID
     Dates: end: 2014
  3. CLARAVIS [Suspect]
     Active Substance: ISOTRETINOIN
     Dosage: 30 MG, BID
     Dates: end: 2014

REACTIONS (6)
  - Myopia [Recovered/Resolved]
  - Headache [Not Recovered/Not Resolved]
  - Dry eye [Recovering/Resolving]
  - Vitreous floaters [Not Recovered/Not Resolved]
  - Blindness transient [Recovered/Resolved]
  - Photopsia [Not Recovered/Not Resolved]

NARRATIVE: CASE EVENT DATE: 2014
